FAERS Safety Report 18039117 (Version 3)
Quarter: 2020Q3

REPORT INFORMATION
  Report Type: Spontaneous
  Country: US (occurrence: US)
  Receive Date: 20200717
  Receipt Date: 20200810
  Transmission Date: 20201103
  Serious: Yes (Other)
  Sender: FDA-Public Use
  Company Number: US-INTRA-CELLULAR THERAPIES, INC.-2020ICT00036

PATIENT
  Sex: Female
  Weight: 54.42 kg

DRUGS (5)
  1. REXULTI [Concomitant]
     Active Substance: BREXPIPRAZOLE
     Dosage: UNK MG
  2. CAPLYTA [Suspect]
     Active Substance: LUMATEPERONE
     Indication: PARANOIA
     Dosage: 42 MG, 1X/DAY AT BEDTIME
     Dates: start: 20200530, end: 20200531
  3. WELLBUTRIN [Concomitant]
     Active Substance: BUPROPION HYDROCHLORIDE
     Dosage: UNK MG
  4. RITALIN [Concomitant]
     Active Substance: METHYLPHENIDATE HYDROCHLORIDE
     Dosage: UNK MG
  5. ATIVAN [Concomitant]
     Active Substance: LORAZEPAM
     Dosage: UNK, AS NEEDED

REACTIONS (4)
  - Stevens-Johnson syndrome [Recovered/Resolved]
  - Myalgia [Recovered/Resolved]
  - Drug hypersensitivity [Recovered/Resolved]
  - Off label use [Recovered/Resolved]

NARRATIVE: CASE EVENT DATE: 202005
